FAERS Safety Report 6316094-2 (Version None)
Quarter: 2009Q3

REPORT INFORMATION
  Report Type: 
  Country: None (occurrence: None)
  Receive Date: 20090820
  Receipt Date: 20090819
  Transmission Date: 20100115
  Serious: No
  Sender: FDA-Public Use
  Company Number: US-B.I. PHARMACEUTICALS,INC./RIDGEFIELD-2009-BP-08349BP

PATIENT
  Age: 69 Year
  Sex: Male
  Weight: 83.5 kg

DRUGS (2)
  1. SPIRIVA [Suspect]
     Indication: CHRONIC OBSTRUCTIVE PULMONARY DISEASE
  2. PROVENTIL-HFA [Suspect]
     Dates: end: 20080801

REACTIONS (2)
  - ANXIETY [None]
  - PANIC ATTACK [None]
